FAERS Safety Report 5875683-X (Version None)
Quarter: 2008Q3

REPORT INFORMATION
  Report Type: 
  Country: None (occurrence: None)
  Receive Date: 20080904
  Receipt Date: 20080825
  Transmission Date: 20090109
  Serious: Yes (Life-Threatening, Hospitalization)
  Sender: FDA-Public Use
  Company Number: 2008AP001889

PATIENT
  Age: 46 Year
  Sex: Female

DRUGS (5)
  1. CITALOPRAM HYDROBROMIDE [Suspect]
     Indication: DEPRESSION
     Dosage: 20 MG; QD;
  2. FLUCONAZOLE [Suspect]
     Dosage: 200 MG; QD;
  3. ESOMEPRAZOLE [Suspect]
  4. CORTICOSTEROIDS [Concomitant]
  5. METHOTREXATE [Concomitant]

REACTIONS (9)
  - AREFLEXIA [None]
  - BLOOD PRESSURE INCREASED [None]
  - CONFUSIONAL STATE [None]
  - DELIRIUM [None]
  - DRUG INTERACTION [None]
  - MEMORY IMPAIRMENT [None]
  - PERSEVERATION [None]
  - PSYCHOMOTOR SKILLS IMPAIRED [None]
  - SEROTONIN SYNDROME [None]
